FAERS Safety Report 5826314-6 (Version None)
Quarter: 2008Q3

REPORT INFORMATION
  Report Type: 
  Country: None (occurrence: None)
  Receive Date: 20080723
  Receipt Date: 20080709
  Transmission Date: 20090109
  Serious: Yes (Other)
  Sender: FDA-Public Use
  Company Number: IDA-00102

PATIENT
  Age: 42 Year
  Sex: Female

DRUGS (2)
  1. PROPRANOLOL [Suspect]
     Indication: TACHYCARDIA
     Dosage: 40 MG TID PO
     Route: 048
  2. PHENOXYBENZAMINE [Concomitant]

REACTIONS (2)
  - BRADYCARDIA [None]
  - HYPERTENSION [None]
